FAERS Safety Report 11692159 (Version 5)
Quarter: 2016Q3

REPORT INFORMATION
  Report Type: Spontaneous
  Country: CA (occurrence: CA)
  Receive Date: 20151103
  Receipt Date: 20160902
  Transmission Date: 20161109
  Serious: Yes (Other)
  Sender: FDA-Public Use
  Company Number: CA-BEH-2015055203

PATIENT
  Age: 65 Year
  Sex: Male

DRUGS (1)
  1. ALBUREX [Suspect]
     Active Substance: ALBUMIN HUMAN
     Indication: HAEMODIALYSIS
     Dosage: FULL VIAL ADMINISTERED
     Route: 065
     Dates: start: 20151011, end: 20151011

REACTIONS (4)
  - Staphylococcus test positive [Recovered/Resolved]
  - Candida test positive [Recovered/Resolved]
  - Pyrexia [Recovered/Resolved]
  - PaO2/FiO2 ratio decreased [Recovered/Resolved]

NARRATIVE: CASE EVENT DATE: 20151011
